FAERS Safety Report 7966089-8 (Version None)
Quarter: 2011Q4

REPORT INFORMATION
  Report Type: 
  Country: None (occurrence: None)
  Receive Date: 20111208
  Receipt Date: 20111128
  Transmission Date: 20120403
  Serious: Yes (Hospitalization, Other)
  Sender: FDA-Public Use
  Company Number: AU-JNJFOC-20111108369

PATIENT
  Sex: Female
  Weight: 111 kg

DRUGS (7)
  1. INVEGA SUSTENNA [Suspect]
     Indication: SCHIZOPHRENIA
     Route: 030
     Dates: start: 20111118
  2. MIRENA [Concomitant]
     Dates: start: 20100312
  3. CITALOPRAM HYDROBROMIDE [Concomitant]
     Route: 048
  4. INVEGA SUSTENNA [Suspect]
     Route: 030
     Dates: start: 20110916
  5. METFORMIN HCL [Concomitant]
     Route: 048
  6. ROSUVASTATIN [Concomitant]
     Route: 048
  7. VALPROATE SODIUM [Concomitant]
     Route: 048

REACTIONS (1)
  - THROMBOTIC THROMBOCYTOPENIC PURPURA [None]
